FAERS Safety Report 13653253 (Version 1)
Quarter: 2017Q2

REPORT INFORMATION
  Report Type: Spontaneous
  Country: US (occurrence: US)
  Receive Date: 20170614
  Receipt Date: 20170614
  Transmission Date: 20170830
  Serious: Yes (Other)
  Sender: FDA-Public Use
  Company Number: US-ROCHE-671863

PATIENT
  Sex: Male

DRUGS (1)
  1. XELODA [Suspect]
     Active Substance: CAPECITABINE
     Indication: OESOPHAGEAL CARCINOMA
     Dosage: INDICATION: STAGE 4 ESOPHAGEAL CANCER OR METASTATIC LIVER DISEASE
     Route: 048

REACTIONS (1)
  - Dysphagia [Not Recovered/Not Resolved]
